FAERS Safety Report 11653985 (Version 2)
Quarter: 2015Q4

REPORT INFORMATION
  Report Type: Spontaneous
  Country: US (occurrence: None)
  Receive Date: 20151023
  Receipt Date: 20151028
  Transmission Date: 20160304
  Serious: Yes (Hospitalization, Other)
  Sender: FDA-Public Use
  Company Number: US-MDT-ADR-2015-02005

PATIENT
  Age: 56 Year
  Sex: Male

DRUGS (2)
  1. BACLOFEN INTRATHECAL [Suspect]
     Active Substance: BACLOFEN
  2. MORPHINE INTRATHECAL [Suspect]
     Active Substance: MORPHINE

REACTIONS (2)
  - Lethargy [None]
  - Hyporesponsive to stimuli [None]
